FAERS Safety Report 10261494 (Version 2)
Quarter: 2019Q3

REPORT INFORMATION
  Report Type: Spontaneous
  Country: PL (occurrence: PL)
  Receive Date: 20140626
  Receipt Date: 20190711
  Transmission Date: 20191004
  Serious: Yes (Other)
  Sender: FDA-Public Use
  Company Number: PL-JNJFOC-20140612360

PATIENT
  Age: 41 Year
  Sex: Male

DRUGS (7)
  1. HEPARIN [Suspect]
     Active Substance: HEPARIN SODIUM
     Indication: ANTICOAGULANT THERAPY
  2. ABCIXIMAB [Suspect]
     Active Substance: ABCIXIMAB
     Indication: ANTIPLATELET THERAPY
  3. PLAVIX [Suspect]
     Active Substance: CLOPIDOGREL BISULFATE
     Route: 065
  4. HEPARIN [Suspect]
     Active Substance: HEPARIN SODIUM
     Indication: THROMBOSIS
     Dosage: HEPARIN (SALT NOT SPECIFIED)
     Route: 065
  5. ASPIRIN. [Suspect]
     Active Substance: ASPIRIN
     Indication: ANTIPLATELET THERAPY
     Route: 065
  6. PLAVIX [Suspect]
     Active Substance: CLOPIDOGREL BISULFATE
     Indication: ANTIPLATELET THERAPY
     Route: 065
  7. ABCIXIMAB [Suspect]
     Active Substance: ABCIXIMAB
     Indication: CORONARY ANGIOPLASTY
     Route: 065

REACTIONS (3)
  - Conjunctival haemorrhage [Unknown]
  - Tongue haematoma [Unknown]
  - Mucosal haemorrhage [Unknown]
